FAERS Safety Report 6617781-9 (Version None)
Quarter: 2010Q1

REPORT INFORMATION
  Report Type: 
  Country: None (occurrence: None)
  Receive Date: 20100308
  Receipt Date: 20100303
  Transmission Date: 20100710
  Serious: Yes (Death, Life-Threatening, Hospitalization)
  Sender: FDA-Public Use
  Company Number: PHEH2010US00734

PATIENT
  Sex: Female

DRUGS (2)
  1. RECLAST [Suspect]
     Dosage: 5 MG/100ML, YEARLY
     Route: 042
     Dates: start: 20091005, end: 20091005
  2. LASIX [Concomitant]
     Dosage: UNK, UNK
     Route: 065

REACTIONS (7)
  - CARDIAC FAILURE [None]
  - GLOMERULONEPHRITIS [None]
  - JOINT SWELLING [None]
  - OEDEMA PERIPHERAL [None]
  - PAIN [None]
  - RENAL FAILURE [None]
  - VASCULITIS [None]
